FAERS Safety Report 6653328-9 (Version None)
Quarter: 2010Q1

REPORT INFORMATION
  Report Type: 
  Country: None (occurrence: None)
  Receive Date: 20100326
  Receipt Date: 20100315
  Transmission Date: 20100710
  Serious: No
  Sender: FDA-Public Use
  Company Number: US-ROCHE-691811

PATIENT
  Age: 41 Year
  Sex: Male

DRUGS (11)
  1. TAMIFLU [Suspect]
     Indication: H1N1 INFLUENZA
     Route: 048
  2. TAMIFLU [Suspect]
     Route: 048
  3. PENTOSTATIN [Concomitant]
  4. BUSULFEX [Concomitant]
     Route: 042
  5. RITUXIMAB [Concomitant]
  6. TACROLIMUS [Concomitant]
     Route: 048
  7. TACROLIMUS [Concomitant]
     Route: 048
  8. SIROLIMUS [Concomitant]
     Route: 048
  9. PREDNISONE TAB [Concomitant]
     Dosage: EVERY OTHER DAY
     Route: 048
  10. VANCOMYCIN [Concomitant]
  11. CEFEPIME [Concomitant]

REACTIONS (3)
  - DRUG INEFFECTIVE [None]
  - NO ADVERSE EVENT [None]
  - OVERDOSE [None]
